FAERS Safety Report 9833151 (Version 1)
Quarter: 2014Q1

REPORT INFORMATION
  Report Type: Spontaneous
  Country: US (occurrence: US)
  Receive Date: 20140121
  Receipt Date: 20140121
  Transmission Date: 20141002
  Serious: No
  Sender: FDA-Public Use
  Company Number: US-BAUSCH-BL-2012-002151

PATIENT
  Age: 70 Year
  Sex: Female

DRUGS (10)
  1. ALAWAY [Suspect]
     Indication: EYE PRURITUS
     Dosage: 1 DROP IN EACH EYE; ONCE DAILY;OPHTHALMIC
     Route: 047
     Dates: start: 201212, end: 201212
  2. MAGNESIUM [Concomitant]
  3. PROPYLENE GLYCOL/MACROGOL 400 [Concomitant]
  4. POTASSIUM CHLORIDE [Concomitant]
  5. ACETYLSALICYLIC ACID [Concomitant]
  6. ASCORBIC ACID [Concomitant]
  7. LINUM USITATISSIMUM SEED OIL [Concomitant]
  8. CALCIUM CARBONATE [Concomitant]
  9. ASCORBIC ACID/TOCOPHERYL ACETATE/RETINOL/ZINC/CALCIUM/VITAMINS NOS/MINERALS NOS/VITAMIN B NOS [Concomitant]
  10. FUROSEMIDE [Concomitant]

REACTIONS (4)
  - Eye irritation [Recovered/Resolved]
  - Skin irritation [Recovered/Resolved]
  - Condition aggravated [Recovered/Resolved]
  - Eye pruritus [None]
